FAERS Safety Report 9785459 (Version 1)
Quarter: 2013Q4

REPORT INFORMATION
  Report Type: Spontaneous
  Country: US (occurrence: None)
  Receive Date: 20131226
  Receipt Date: 20131226
  Transmission Date: 20140711
  Serious: No
  Sender: FDA-Public Use
  Company Number: None

PATIENT
  Age: 78 Year
  Sex: Female
  Weight: 80.97 kg

DRUGS (10)
  1. ALENDRONATE [Suspect]
     Indication: HIP FRACTURE
     Route: 048
     Dates: start: 201307, end: 20130819
  2. DIAZEPAM [Concomitant]
  3. LESCOL [Concomitant]
  4. PAXIL [Concomitant]
  5. SYNTHROID [Concomitant]
  6. LISINOPRIL [Concomitant]
  7. VITS C [Concomitant]
  8. VITS D3 [Concomitant]
  9. CRANBERRY [Concomitant]
  10. CALCIUM [Concomitant]

REACTIONS (3)
  - Abasia [None]
  - Movement disorder [None]
  - Pain [None]
